FAERS Safety Report 5353603-4 (Version None)
Quarter: 2007Q2

REPORT INFORMATION
  Report Type: 
  Country: None (occurrence: None)
  Receive Date: 20070608
  Receipt Date: 20070608
  Transmission Date: 20071010
  Serious: No
  Sender: FDA-Public Use
  Company Number: None

PATIENT
  Sex: Male

DRUGS (1)
  1. LAMICTAL [Suspect]
     Indication: BIPOLAR DISORDER
     Dosage: 50MG BID P.O.
     Route: 048
     Dates: start: 20070423, end: 20070510

REACTIONS (4)
  - LYMPHADENOPATHY [None]
  - PURPURA [None]
  - RASH [None]
  - TENDERNESS [None]
